FAERS Safety Report 4645914-2 (Version None)
Quarter: 2005Q2

REPORT INFORMATION
  Report Type: 
  Country: None (occurrence: None)
  Receive Date: 20050425
  Receipt Date: 20050412
  Transmission Date: 20051028
  Serious: Yes (Death)
  Sender: FDA-Public Use
  Company Number: HQWYE017014APR05

PATIENT
  Age: 18 Year
  Sex: Female
  Weight: 63.56 kg

DRUGS (2)
  1. EFFEXOR XR [Suspect]
     Indication: DEPRESSION
     Dosage: ORAL
     Route: 048
     Dates: start: 20050405, end: 20050405
  2. WELLBUTRIN XL [Suspect]
     Indication: DEPRESSION
     Dosage: ORAL
     Route: 048
     Dates: start: 20050405, end: 20050405

REACTIONS (2)
  - CONVULSION [None]
  - OVERDOSE [None]
